FAERS Safety Report 20958384 (Version 1)
Quarter: 2022Q2

REPORT INFORMATION
  Report Type: Spontaneous
  Country: US (occurrence: US)
  Receive Date: 20220614
  Receipt Date: 20220614
  Transmission Date: 20220720
  Serious: No
  Sender: FDA-Public Use
  Company Number: US-BRISTOL-MYERS SQUIBB COMPANY-2022-048390

PATIENT
  Age: 79 Year
  Sex: Male

DRUGS (1)
  1. REVLIMID [Suspect]
     Active Substance: LENALIDOMIDE
     Indication: Bone disorder
     Dosage: FREQUENCY: DAILY ON DAYS 1- 14 OF EACH 21 DAYS CYCLE.
     Route: 048

REACTIONS (2)
  - COVID-19 [Unknown]
  - Intentional product use issue [Unknown]
